FAERS Safety Report 25289418 (Version 1)
Quarter: 2025Q2

REPORT INFORMATION
  Report Type: Spontaneous
  Country: US (occurrence: US)
  Receive Date: 20250509
  Receipt Date: 20250509
  Transmission Date: 20250716
  Serious: Yes (Hospitalization)
  Sender: ETHYPHARM
  Company Number: US-MLMSERVICE-20250416-PI480221-00073-1

PATIENT
  Age: 30 Year
  Sex: Female

DRUGS (8)
  1. BUPRENORPHINE [Suspect]
     Active Substance: BUPRENORPHINE
     Indication: Chest pain
     Dosage: SUBLINGUAL BUPRENORPHINE 2 MG Q8H ON POD10, GRADUALLY TAPERED OFF PRIOR TO DISCHARGE ON POD 42
     Route: 060
  2. BUPRENORPHINE [Suspect]
     Active Substance: BUPRENORPHINE
     Indication: Chest pain
     Dosage: 0.15 MG Q6H, STARTED POSTOPERATIVE DAY 0, DISCONTINUED POSTOPERATIVE DAY 10
     Route: 042
  3. ACETAMINOPHEN [Concomitant]
     Active Substance: ACETAMINOPHEN
     Indication: Procedural pain
     Dosage: 1000 MG Q8H PRN, POSTOPERATIVE DAY 0
     Route: 048
  4. ACETAMINOPHEN [Concomitant]
     Active Substance: ACETAMINOPHEN
     Indication: Procedural pain
     Route: 048
  5. METHOCARBAMOL [Concomitant]
     Active Substance: METHOCARBAMOL
     Indication: Muscle spasms
     Dosage: 500 MG Q4H PRN, POSTOPERATIVE DAY 0
     Route: 048
  6. METHOCARBAMOL [Concomitant]
     Active Substance: METHOCARBAMOL
     Indication: Muscle spasms
     Route: 048
  7. LIDOCAINE [Concomitant]
     Active Substance: LIDOCAINE
     Indication: Procedural pain
     Route: 062
  8. HYDROMORPHONE [Concomitant]
     Active Substance: HYDROMORPHONE
     Indication: Chest pain
     Dosage: 4 MG Q2H PRN, POSTOPERATIVE DAY 10
     Route: 048

REACTIONS (4)
  - Nausea [Recovered/Resolved]
  - Vomiting [Recovered/Resolved]
  - Drug withdrawal syndrome [Recovered/Resolved]
  - Off label use [Recovered/Resolved]
